FAERS Safety Report 7906756-5 (Version None)
Quarter: 2011Q4

REPORT INFORMATION
  Report Type: 
  Country: None (occurrence: None)
  Receive Date: 20111110
  Receipt Date: 20111101
  Transmission Date: 20120403
  Serious: Yes (Other)
  Sender: FDA-Public Use
  Company Number: IE-MEDIMMUNE-MEDI-0013829

PATIENT
  Sex: Male

DRUGS (6)
  1. HYOSCINE HYDROBROMIDE [Concomitant]
  2. LEVETIRACETAM [Concomitant]
  3. AMEND [Concomitant]
  4. SYNAGIS [Suspect]
     Route: 030
     Dates: start: 20111001, end: 20111001
  5. LACTULOSE [Concomitant]
  6. MORPHINE SULFATE [Concomitant]

REACTIONS (1)
  - PULMONARY CONGESTION [None]
